FAERS Safety Report 14571174 (Version 3)
Quarter: 2018Q3

REPORT INFORMATION
  Report Type: Report from Study
  Country: JP (occurrence: JP)
  Receive Date: 20180226
  Receipt Date: 20180816
  Transmission Date: 20181010
  Serious: Yes (Death, Hospitalization, Other)
  Sender: FDA-Public Use
  Company Number: JP-009507513-1802JPN002027J

PATIENT
  Age: 74 Year
  Sex: Male
  Weight: 51 kg

DRUGS (8)
  1. CALONAL [Concomitant]
     Active Substance: ACETAMINOPHEN
     Dosage: UNK
     Route: 065
  2. DAIKENCHUTO [Concomitant]
     Active Substance: HERBALS
     Dosage: UNK
     Route: 065
  3. OXINORM [Concomitant]
     Dosage: UNK
     Route: 065
  4. GLIMICRON [Concomitant]
     Active Substance: GLICLAZIDE
     Dosage: UNK
     Route: 065
  5. OXYCONTIN [Concomitant]
     Active Substance: OXYCODONE HYDROCHLORIDE
     Dosage: UNK
     Route: 065
  6. KEYTRUDA [Suspect]
     Active Substance: PEMBROLIZUMAB
     Indication: TRANSITIONAL CELL CARCINOMA
     Dosage: 200 MG, Q3W
     Route: 041
     Dates: start: 20180205, end: 20180205
  7. JANUVIA [Concomitant]
     Active Substance: SITAGLIPTIN PHOSPHATE
     Dosage: UNK
     Route: 048
  8. DENOTAS [Concomitant]
     Active Substance: CALCIUM CARBONATE\CHOLECALCIFEROL\MAGNESIUM CARBONATE
     Dosage: UNK
     Route: 048

REACTIONS (2)
  - Malignant neoplasm progression [Fatal]
  - Asphyxia [Fatal]

NARRATIVE: CASE EVENT DATE: 20180216
